FAERS Safety Report 7028702-1 (Version None)
Quarter: 2010Q4

REPORT INFORMATION
  Report Type: 
  Country: None (occurrence: None)
  Receive Date: 20101005
  Receipt Date: 20100929
  Transmission Date: 20110411
  Serious: Yes (Other)
  Sender: FDA-Public Use
  Company Number: JP-PFIZER INC-2010083722

PATIENT
  Age: 76 Year
  Sex: Male

DRUGS (4)
  1. LYRICA [Suspect]
     Dosage: 75 MG, 2X/DAY
     Route: 048
     Dates: start: 20100630
  2. ZOLOFT [Suspect]
     Route: 048
  3. ATARAX [Suspect]
  4. VOLTAREN [Suspect]
     Route: 048

REACTIONS (3)
  - FEELING ABNORMAL [None]
  - PAIN [None]
  - VISUAL IMPAIRMENT [None]
